FAERS Safety Report 21599627 (Version 1)
Quarter: 2022Q4

REPORT INFORMATION
  Report Type: Spontaneous
  Country: US (occurrence: None)
  Receive Date: 20221115
  Receipt Date: 20221115
  Transmission Date: 20230113
  Serious: Yes (Hospitalization)
  Sender: FDA-Public Use
  Company Number: None

PATIENT
  Age: 81 Year
  Sex: Male

DRUGS (1)
  1. RIVAROXABAN [Suspect]
     Active Substance: RIVAROXABAN
     Indication: Atrial fibrillation
     Dosage: 20 MG EVERY DAY PO?
     Route: 048
     Dates: start: 20220607, end: 20220926

REACTIONS (2)
  - Cerebrovascular accident [None]
  - Intra-abdominal haematoma [None]

NARRATIVE: CASE EVENT DATE: 20220926
